FAERS Safety Report 18001053 (Version 3)
Quarter: 2020Q3

REPORT INFORMATION
  Report Type: Spontaneous
  Country: US (occurrence: US)
  Receive Date: 20200709
  Receipt Date: 20200828
  Transmission Date: 20201103
  Serious: Yes (Death, Life-Threatening, Hospitalization, Other)
  Sender: FDA-Public Use
  Company Number: US-GILEAD-2020-0480857

PATIENT
  Age: 63 Year
  Sex: Male
  Weight: 87.7 kg

DRUGS (34)
  1. FOLIC ACID. [Concomitant]
     Active Substance: FOLIC ACID
     Dosage: 1 MG, QD
     Route: 048
     Dates: start: 20200626, end: 20200703
  2. MIDAZOLAM. [Concomitant]
     Active Substance: MIDAZOLAM
     Dosage: UNK
     Route: 042
     Dates: start: 20200628, end: 20200703
  3. PROPOFOL. [Concomitant]
     Active Substance: PROPOFOL
     Dosage: UNK
     Dates: start: 20200627, end: 20200703
  4. PANTOPRAZOLE [Concomitant]
     Active Substance: PANTOPRAZOLE
     Dosage: 40 MG, QD
     Route: 042
     Dates: start: 20200626, end: 20200703
  5. MELOXICAM. [Concomitant]
     Active Substance: MELOXICAM
  6. LACTULOSE. [Concomitant]
     Active Substance: LACTULOSE
     Dosage: 30 MG, Q4HR
     Dates: start: 20200629, end: 20200703
  7. ZOSYN [Concomitant]
     Active Substance: PIPERACILLIN SODIUM\TAZOBACTAM SODIUM
     Dosage: 3.375 G, Q8H
     Route: 042
     Dates: start: 20200702, end: 20200703
  8. NOREPINEPHRINE. [Concomitant]
     Active Substance: NOREPINEPHRINE
     Dosage: UNK
     Route: 042
     Dates: start: 20200703, end: 20200703
  9. REMDESIVIR. [Suspect]
     Active Substance: REMDESIVIR
     Indication: COVID-19
     Dosage: 200 MG, ONCE
     Route: 065
     Dates: start: 20200626, end: 20200626
  10. LEVOPHED [Concomitant]
     Active Substance: NOREPINEPHRINE BITARTRATE
     Indication: HYPOTENSION
     Dosage: TITRATED
     Route: 042
     Dates: start: 20200628, end: 20200703
  11. AMIODARONE [Concomitant]
     Active Substance: AMIODARONE
     Dosage: UNK
     Route: 042
     Dates: start: 20200703, end: 20200703
  12. TOCILIZUMAB. [Concomitant]
     Active Substance: TOCILIZUMAB
     Dosage: 400 MG
     Route: 042
     Dates: start: 20200703, end: 20200703
  13. MIDODRINE [Concomitant]
     Active Substance: MIDODRINE
     Dosage: 5 MG, Q8H
     Dates: start: 20200630, end: 20200701
  14. METOPROLOL. [Concomitant]
     Active Substance: METOPROLOL
  15. CEFTRIAXONE. [Concomitant]
     Active Substance: CEFTRIAXONE
     Dosage: 2 MG, QD
     Route: 042
     Dates: start: 20200627
  16. ACETYLCYSTEINE. [Concomitant]
     Active Substance: ACETYLCYSTEINE
  17. FENTANYL. [Concomitant]
     Active Substance: FENTANYL
     Dosage: UNK
     Route: 042
     Dates: start: 20200628, end: 20200703
  18. LEVOCARNITINE. [Concomitant]
     Active Substance: LEVOCARNITINE
     Dosage: 990 MG, Q6H
     Route: 048
     Dates: start: 20200702, end: 20200703
  19. REMDESIVIR. [Suspect]
     Active Substance: REMDESIVIR
     Dosage: 100 MG, QD
     Route: 065
     Dates: start: 20200627, end: 20200628
  20. DOXYCYCLINE. [Concomitant]
     Active Substance: DOXYCYCLINE
     Dosage: 100 MG
     Route: 048
     Dates: start: 20200627, end: 20200703
  21. RIFAXIMIN. [Concomitant]
     Active Substance: RIFAXIMIN
     Dosage: 550 MG, BID
     Route: 048
     Dates: start: 20200629, end: 20200703
  22. VITAMINS NOS [Concomitant]
     Active Substance: VITAMINS
     Dosage: UNK UNK, QD
     Dates: start: 20200627, end: 20200703
  23. INSULIN [Concomitant]
     Active Substance: INSULIN NOS
     Dosage: SLIDING SCALE
     Dates: start: 20200629, end: 20200703
  24. CEPHALEXIN [CEFALEXIN] [Concomitant]
     Active Substance: CEPHALEXIN
     Dosage: UNK
  25. GABAPENTIN. [Concomitant]
     Active Substance: GABAPENTIN
     Dosage: UNK
  26. DECADRON [Concomitant]
     Active Substance: DEXAMETHASONE
     Dosage: 6 MG, QD
     Route: 042
     Dates: start: 20200626, end: 20200703
  27. LANTUS [Concomitant]
     Active Substance: INSULIN GLARGINE
     Dosage: UNK
     Route: 058
     Dates: start: 20200630, end: 20200703
  28. MIDODRINE [Concomitant]
     Active Substance: MIDODRINE
     Dosage: 10 UNK
     Dates: start: 20200701, end: 20200703
  29. ENOXAPARIN [Concomitant]
     Active Substance: ENOXAPARIN
     Dosage: 90 MG, QD
     Route: 058
     Dates: start: 20200626, end: 20200628
  30. THIAMINE. [Concomitant]
     Active Substance: THIAMINE
     Dosage: 100 MG, QD
     Route: 048
     Dates: start: 20200626, end: 20200703
  31. LACTULOSE. [Concomitant]
     Active Substance: LACTULOSE
     Indication: AMMONIA INCREASED
     Dosage: 30 G, QID
     Dates: start: 20200628, end: 20200629
  32. ALBUMIN [Concomitant]
     Active Substance: ALBUMIN HUMAN
  33. HEPARIN [Concomitant]
     Active Substance: HEPARIN SODIUM
     Dosage: UNK
     Dates: start: 20200629, end: 20200703
  34. VANCOMYCIN [Concomitant]
     Active Substance: VANCOMYCIN
     Dosage: UNK
     Route: 042
     Dates: start: 20200702, end: 20200703

REACTIONS (4)
  - Acute respiratory distress syndrome [Fatal]
  - Ammonia increased [Not Recovered/Not Resolved]
  - Renal failure [Not Recovered/Not Resolved]
  - COVID-19 pneumonia [Fatal]

NARRATIVE: CASE EVENT DATE: 20200628
